FAERS Safety Report 9766547 (Version 1)
Quarter: 2013Q4

REPORT INFORMATION
  Report Type: Report from Study
  Country: US (occurrence: US)
  Receive Date: 20131217
  Receipt Date: 20131217
  Transmission Date: 20140711
  Serious: Yes (Other)
  Sender: FDA-Public Use
  Company Number: US-ROCHE-1316156

PATIENT
  Sex: Female

DRUGS (5)
  1. RITUXAN [Suspect]
     Indication: VASCULITIS
     Route: 042
  2. RITUXAN [Suspect]
     Route: 042
  3. CELLCEPT [Suspect]
     Indication: VASCULITIS
     Route: 065
  4. GABAPENTIN [Concomitant]
     Indication: EPILEPSY
  5. LEVETIRACETAM [Concomitant]
     Indication: EPILEPSY

REACTIONS (2)
  - Asthenia [Unknown]
  - Adrenal neoplasm [Unknown]
